FAERS Safety Report 22168099 (Version 1)
Quarter: 2023Q2

REPORT INFORMATION
  Report Type: Spontaneous
  Country: FR (occurrence: FR)
  Receive Date: 20230403
  Receipt Date: 20230403
  Transmission Date: 20230722
  Serious: Yes (Other)
  Sender: FDA-Public Use
  Company Number: None

PATIENT
  Age: 54 Year
  Sex: Female
  Weight: 54 kg

DRUGS (2)
  1. TOPIRAMATE [Interacting]
     Active Substance: TOPIRAMATE
     Indication: Migraine
     Route: 048
  2. LEVOTHYROXINE [Interacting]
     Active Substance: LEVOTHYROXINE
     Indication: Autoimmune hypothyroidism
     Route: 048

REACTIONS (2)
  - Hypothyroidism [Not Recovered/Not Resolved]
  - Drug interaction [Not Recovered/Not Resolved]

NARRATIVE: CASE EVENT DATE: 20221201
